FAERS Safety Report 10953640 (Version 2)
Quarter: 2015Q2

REPORT INFORMATION
  Report Type: Spontaneous
  Country: US (occurrence: US)
  Receive Date: 20150325
  Receipt Date: 20150409
  Transmission Date: 20150821
  Serious: Yes (Congenital Anomaly, Other)
  Sender: FDA-Public Use
  Company Number: US-ELI_LILLY_AND_COMPANY-US201503006381

PATIENT

DRUGS (1)
  1. PROZAC [Suspect]
     Active Substance: FLUOXETINE HYDROCHLORIDE
     Indication: PRODUCT USED FOR UNKNOWN INDICATION
     Dosage: 20 MG, UNKNOWN
     Route: 064

REACTIONS (11)
  - Synostosis [Unknown]
  - Developmental delay [Unknown]
  - Tic [Unknown]
  - Craniosynostosis [Unknown]
  - Obsessive-compulsive disorder [Unknown]
  - Foetal exposure during pregnancy [Unknown]
  - Special senses congenital anomaly [Unknown]
  - Seizure [Unknown]
  - Tourette^s disorder [Unknown]
  - Attention deficit/hyperactivity disorder [Unknown]
  - Mild mental retardation [Unknown]
